FAERS Safety Report 18691499 (Version 3)
Quarter: 2021Q1

REPORT INFORMATION
  Report Type: Report from Study
  Country: US (occurrence: US)
  Receive Date: 20210101
  Receipt Date: 20210209
  Transmission Date: 20210419
  Serious: Yes (Other)
  Sender: FDA-Public Use
  Company Number: US-BAUSCH-BL-2020-034976

PATIENT
  Age: 65 Year
  Sex: Male

DRUGS (17)
  1. IMIQUIMOD. [Suspect]
     Active Substance: IMIQUIMOD
     Indication: SQUAMOUS CELL CARCINOMA OF SKIN
     Route: 061
  2. CALCIPOTRIENE. [Concomitant]
     Active Substance: CALCIPOTRIENE
     Indication: PSORIASIS
     Dosage: DOSE: 1 (UNIT UNKNOWN). APPLY TO AFFECTED AREAS
     Route: 061
     Dates: start: 20200904
  3. LIQUID NITROGEN [Concomitant]
     Active Substance: NITROGEN
     Indication: ACTINIC KERATOSIS
  4. CLOBETASOL [Concomitant]
     Active Substance: CLOBETASOL
     Dosage: DOSE: 1 (UNIT UNKNOWN). APPLY A THIN LAYER TO AFFECTED AREAS BID FOR NO MORE THAN 2 WEEKS PER MONTH
     Route: 061
     Dates: start: 20200706
  5. ADULTS MULTIVITAMIN [Concomitant]
     Indication: PRODUCT USED FOR UNKNOWN INDICATION
     Dosage: DOSE: 1 (UNKNOWN UNIT). 18MG IRON?400MCG?25MCG
     Route: 048
  6. ZORTRESS [Concomitant]
     Active Substance: EVEROLIMUS
     Indication: PRODUCT USED FOR UNKNOWN INDICATION
     Dosage: DOSE: 1 (UNKNOWN UNIT)
     Route: 048
  7. DUOBRII [Suspect]
     Active Substance: HALOBETASOL PROPIONATE\TAZAROTENE
     Indication: PSORIASIS
     Dosage: STRENGTH: 0.01/0.045 PERCENT. DOSE; 1 APPLICATION (UNKNOWN UNIT) ON HIS LEG ARMS, HANDS AND CHEST
     Route: 061
     Dates: start: 20191028, end: 20201101
  8. IMIQUIMOD. [Suspect]
     Active Substance: IMIQUIMOD
     Indication: ACTINIC KERATOSIS
     Dosage: DOSE: 1 (UNIT UNK)AT NIGHT. APPLY TO SCALP FOR 2 WEEKS THEN 2 WEEKS OFF FOR TOTAL 6 WEEKS OF THERAPY
     Route: 061
     Dates: start: 20191104, end: 201912
  9. CLOBETASOL [Concomitant]
     Active Substance: CLOBETASOL
     Indication: PRODUCT USED FOR UNKNOWN INDICATION
     Dosage: DOSE:1 (UNKNOWN UNIT). SCALP MIX WITH CERAVE MOISTURIZER CREAM AND APPLY TO AFFECTED AREAS BID. PRN.
     Route: 061
     Dates: start: 20190301
  10. HYDROXYZINE HCL [Concomitant]
     Active Substance: HYDROXYZINE HYDROCHLORIDE
     Indication: PRODUCT USED FOR UNKNOWN INDICATION
     Dosage: DOSE: 1 (UNKNOWN UNIT)
     Route: 048
  11. IMIQUIMOD. [Suspect]
     Active Substance: IMIQUIMOD
     Dosage: DOSE:1(UNIT UNK)AT NIGHT. APPLY TO SCALP FOR 2 WKS ON 2 WKS OFF, A REPEAT OF 2 CYCLES UNTIL 6 WKS
     Route: 061
     Dates: start: 20200124
  12. BETAMETHASONE AUGMENTED [Concomitant]
     Indication: PRODUCT USED FOR UNKNOWN INDICATION
     Dosage: DOSE: 1 (UNIT UNKNOWN). APPLY TO AFFECTED AREAS BID FOR 2 WEEKS PER MONTH. PRN
     Route: 061
     Dates: start: 20190415
  13. TACROLIMUS. [Concomitant]
     Active Substance: TACROLIMUS
     Indication: PRODUCT USED FOR UNKNOWN INDICATION
     Dosage: DOSE: 1 (UNKNOWN UNIT)
     Route: 048
  14. TRIAMCINOLONE ACETONIDE. [Concomitant]
     Active Substance: TRIAMCINOLONE ACETONIDE
     Indication: PRODUCT USED FOR UNKNOWN INDICATION
     Dosage: DOSE: 1 (UNKNOWN UNIT). ALL AFFECTED AREA ON LEGS BID FOR 2 WEEKS A MONTH. PRN
     Route: 061
     Dates: start: 20190412
  15. OTEZLA [Concomitant]
     Active Substance: APREMILAST
     Indication: PRODUCT USED FOR UNKNOWN INDICATION
     Dosage: DOSE: 1 (UNKNOWN UNIT)
     Route: 048
  16. MYCOPHENOLATE MOFETIL. [Concomitant]
     Active Substance: MYCOPHENOLATE MOFETIL
     Indication: PRODUCT USED FOR UNKNOWN INDICATION
     Dosage: DOSE: 1 (UNKNOWN UNIT)
     Route: 048
  17. OXYCODONE [Concomitant]
     Active Substance: OXYCODONE
     Indication: PRODUCT USED FOR UNKNOWN INDICATION
     Dosage: DOSE; 1 (UNKNOWN UNIT), FREQUENCY: AS NECESSARY
     Route: 048

REACTIONS (3)
  - COVID-19 [Recovering/Resolving]
  - Therapy interrupted [Unknown]
  - Pneumonia [Recovering/Resolving]

NARRATIVE: CASE EVENT DATE: 20201101
